FAERS Safety Report 14969905 (Version 1)
Quarter: 2018Q2

REPORT INFORMATION
  Report Type: Spontaneous
  Country: US (occurrence: US)
  Receive Date: 20180604
  Receipt Date: 20180604
  Transmission Date: 20180711
  Serious: No
  Sender: FDA-Public Use
  Company Number: US-ELI_LILLY_AND_COMPANY-US201805014194

PATIENT
  Sex: Female

DRUGS (1)
  1. TALTZ [Suspect]
     Active Substance: IXEKIZUMAB
     Indication: PSORIASIS
     Dosage: 160 MG, SINGLE
     Route: 058
     Dates: start: 20180515

REACTIONS (5)
  - Injection site reaction [Unknown]
  - Injection site papule [Unknown]
  - Injection site pain [Unknown]
  - Injection site erythema [Unknown]
  - Injection site warmth [Unknown]

NARRATIVE: CASE EVENT DATE: 20180524
